FAERS Safety Report 21849035 (Version 1)
Quarter: 2023Q1

REPORT INFORMATION
  Report Type: Report from Study
  Country: TR (occurrence: TR)
  Receive Date: 20230111
  Receipt Date: 20230111
  Transmission Date: 20230418
  Serious: Yes (Other)
  Sender: FDA-Public Use
  Company Number: TR-SA-2023SA007178

PATIENT
  Age: 49 Year
  Sex: Female

DRUGS (1)
  1. ENOXAPARIN SODIUM [Suspect]
     Active Substance: ENOXAPARIN SODIUM
     Indication: Superficial vein thrombosis
     Dosage: 0,4 BID
     Route: 058

REACTIONS (1)
  - Deep vein thrombosis [Unknown]
